FAERS Safety Report 20848925 (Version 1)
Quarter: 2022Q2

REPORT INFORMATION
  Report Type: Spontaneous
  Country: DE (occurrence: DE)
  Receive Date: 20220519
  Receipt Date: 20220519
  Transmission Date: 20220720
  Serious: Yes (Other)
  Sender: FDA-Public Use
  Company Number: DE-NOVARTISPH-NVSC2022DE114216

PATIENT
  Age: 68 Year
  Sex: Female

DRUGS (15)
  1. RIBOCICLIB [Suspect]
     Active Substance: RIBOCICLIB
     Indication: Breast cancer
     Dosage: 600 MG (DAY 1-21)
     Route: 065
  2. RIBOCICLIB [Suspect]
     Active Substance: RIBOCICLIB
     Indication: Neoplasm
  3. RIBOCICLIB [Suspect]
     Active Substance: RIBOCICLIB
     Indication: Pleural effusion
  4. RIBOCICLIB [Suspect]
     Active Substance: RIBOCICLIB
     Indication: Pericardial effusion
  5. RIBOCICLIB [Suspect]
     Active Substance: RIBOCICLIB
     Indication: Metastases to bone
  6. RIBOCICLIB [Suspect]
     Active Substance: RIBOCICLIB
     Indication: Metastases to liver
  7. RIBOCICLIB [Suspect]
     Active Substance: RIBOCICLIB
     Indication: Metastases to peritoneum
  8. LETROZOLE [Suspect]
     Active Substance: LETROZOLE
     Indication: Breast cancer
     Dosage: 2.5 MG
     Route: 065
  9. LETROZOLE [Suspect]
     Active Substance: LETROZOLE
     Indication: Neoplasm
  10. LETROZOLE [Suspect]
     Active Substance: LETROZOLE
     Indication: Pleural effusion
  11. LETROZOLE [Suspect]
     Active Substance: LETROZOLE
     Indication: Pericardial effusion
  12. LETROZOLE [Suspect]
     Active Substance: LETROZOLE
     Indication: Metastases to bone
  13. LETROZOLE [Suspect]
     Active Substance: LETROZOLE
     Indication: Metastases to liver
  14. LETROZOLE [Suspect]
     Active Substance: LETROZOLE
     Indication: Metastases to peritoneum
  15. VITAMIN D [Concomitant]
     Active Substance: VITAMIN D NOS
     Indication: Product used for unknown indication
     Dosage: UNK
     Route: 065

REACTIONS (7)
  - Cerebral infarction [Unknown]
  - Aphasia [Unknown]
  - Hypoalbuminaemia [Unknown]
  - COVID-19 [Unknown]
  - Weight decreased [Unknown]
  - Oedema [Unknown]
  - Hernia [Unknown]

NARRATIVE: CASE EVENT DATE: 20210705
